FAERS Safety Report 8188574-9 (Version None)
Quarter: 2012Q1

REPORT INFORMATION
  Report Type: 
  Country: None (occurrence: None)
  Receive Date: 20120306
  Receipt Date: 20120227
  Transmission Date: 20120608
  Serious: Yes (Hospitalization)
  Sender: FDA-Public Use
  Company Number: US-ASTRAZENECA-2010SE34969

PATIENT
  Age: 75 Year
  Sex: Male
  Weight: 80.3 kg

DRUGS (14)
  1. JANUVIA [Concomitant]
  2. PROTONIX [Suspect]
     Route: 065
  3. PLETAL [Concomitant]
  4. CYMBALTA [Concomitant]
  5. TOPROL-XL [Suspect]
     Route: 048
  6. SPIRIVA [Concomitant]
  7. NEXIUM [Suspect]
     Route: 048
  8. FLOMAG [Concomitant]
  9. NEURONTIN [Concomitant]
  10. SYMBICORT [Suspect]
     Indication: CHRONIC OBSTRUCTIVE PULMONARY DISEASE
     Dosage: 160/4.5 MCG FREQUENCY UNKNOWN
     Route: 055
     Dates: start: 20080101
  11. SYNTHROID [Concomitant]
  12. PLAVIX [Concomitant]
  13. BACLOFEN [Concomitant]
  14. INSULIN [Concomitant]

REACTIONS (2)
  - PNEUMONIA [None]
  - RENAL FAILURE [None]
